FAERS Safety Report 10419635 (Version 2)
Quarter: 2014Q3

REPORT INFORMATION
  Report Type: Spontaneous
  Country: US (occurrence: US)
  Receive Date: 20140829
  Receipt Date: 20140908
  Transmission Date: 20150326
  Serious: Yes (Other)
  Sender: FDA-Public Use
  Company Number: US-PFIZER INC-2014239689

PATIENT
  Age: 53 Year
  Sex: Female
  Weight: 95 kg

DRUGS (3)
  1. AMITRIPTYLINE [Concomitant]
     Active Substance: AMITRIPTYLINE
     Dosage: UNK
  2. ESZOPICLONE. [Suspect]
     Active Substance: ESZOPICLONE
     Indication: SLEEP DISORDER
     Dosage: 2 MG, DAILY
     Dates: start: 20140824, end: 20140825
  3. PREGABALIN. [Suspect]
     Active Substance: PREGABALIN
     Dosage: UNK

REACTIONS (7)
  - Drug dispensing error [Unknown]
  - Sedation [Unknown]
  - Abasia [Unknown]
  - Paralysis [Unknown]
  - Insomnia [Unknown]
  - Impaired driving ability [Unknown]
  - Sluggishness [Unknown]

NARRATIVE: CASE EVENT DATE: 20140824
